FAERS Safety Report 5832650-X (Version None)
Quarter: 2008Q3

REPORT INFORMATION
  Report Type: 
  Country: None (occurrence: None)
  Receive Date: 20080804
  Receipt Date: 20080728
  Transmission Date: 20090109
  Serious: Yes (Hospitalization)
  Sender: FDA-Public Use
  Company Number: PHHY2008JP11367

PATIENT
  Age: 80 Year
  Sex: Male

DRUGS (5)
  1. DIOVAN [Suspect]
     Indication: HYPERTENSION
     Dosage: UNK
     Route: 048
     Dates: end: 20080610
  2. AMLODIPINE BESYLATE [Suspect]
     Dosage: 5 MG/DAY
     Route: 048
  3. LASIX [Suspect]
     Dosage: 20 MG/DAY
     Route: 048
  4. PROHEPARUM [Suspect]
     Route: 048
  5. ALYSE A [Suspect]
     Dosage: UNK
     Route: 048

REACTIONS (3)
  - GASTRECTOMY [None]
  - HYPOGLYCAEMIA [None]
  - MUSCULAR WEAKNESS [None]
